FAERS Safety Report 10458518 (Version 1)
Quarter: 2014Q3

REPORT INFORMATION
  Report Type: Spontaneous
  Country: US (occurrence: None)
  Receive Date: 20140916
  Receipt Date: 20140916
  Transmission Date: 20150326
  Serious: Yes (Life-Threatening)
  Sender: FDA-Public Use
  Company Number: None

PATIENT
  Age: 26 Year
  Sex: Female
  Weight: 65.32 kg

DRUGS (1)
  1. PARAGARD T380A [Suspect]
     Active Substance: COPPER

REACTIONS (13)
  - Anxiety [None]
  - Mental disorder [None]
  - Suicidal ideation [None]
  - Abdominal pain [None]
  - Photosensitivity reaction [None]
  - Panic attack [None]
  - Fatigue [None]
  - Muscle spasms [None]
  - Menorrhagia [None]
  - Alopecia [None]
  - Sunburn [None]
  - Haemorrhage [None]
  - Stress [None]

NARRATIVE: CASE EVENT DATE: 20140514
